FAERS Safety Report 5419339-6 (Version None)
Quarter: 2007Q3

REPORT INFORMATION
  Report Type: 
  Country: None (occurrence: None)
  Receive Date: 20070815
  Receipt Date: 20070711
  Transmission Date: 20080115
  Serious: Yes (Hospitalization)
  Sender: FDA-Public Use
  Company Number: 2007VX000369

PATIENT
  Age: 49 Year
  Sex: Male

DRUGS (3)
  1. INTERFERON ALFACON-1 [Suspect]
     Indication: HEPATITIS C
     Dosage: 9 UG; QD; SC
     Route: 058
     Dates: start: 20060301
  2. RIBAVIRIN [Concomitant]
  3. METFORMIN HCL [Concomitant]

REACTIONS (3)
  - ROAD TRAFFIC ACCIDENT [None]
  - SCRATCH [None]
  - SKIN INFECTION [None]
